FAERS Safety Report 8221080-1 (Version None)
Quarter: 2012Q1

REPORT INFORMATION
  Report Type: 
  Country: None (occurrence: None)
  Receive Date: 20120320
  Receipt Date: 20120313
  Transmission Date: 20120608
  Serious: Yes (Death, Hospitalization, Other)
  Sender: FDA-Public Use
  Company Number: US-CELGENEUS-163-21880-12022892

PATIENT
  Age: 80 Year
  Sex: Male

DRUGS (4)
  1. RED BLOOD CELLS [Concomitant]
     Dosage: 2 UNITS
     Route: 041
  2. REVLIMID [Suspect]
     Indication: MULTIPLE MYELOMA
     Dosage: 10 MILLIGRAM
     Route: 048
     Dates: start: 20110418, end: 20120224
  3. NYSTATIN LOZENGES [Concomitant]
     Route: 048
  4. FLUIDS [Concomitant]
     Route: 041

REACTIONS (5)
  - PANCYTOPENIA [None]
  - ARRHYTHMIA [None]
  - FEBRILE NEUTROPENIA [None]
  - RENAL FAILURE [None]
  - SEPTIC SHOCK [None]
